FAERS Safety Report 25444854 (Version 1)
Quarter: 2025Q2

REPORT INFORMATION
  Report Type: Report from Study
  Country: US (occurrence: US)
  Receive Date: 20250617
  Receipt Date: 20250617
  Transmission Date: 20250716
  Serious: Yes (Death, Other)
  Sender: ACADIA PHARMACEUTICALS
  Company Number: US-ACADIA PHARMACEUTICALS INC.-ACA-2025-PIM-007042

PATIENT
  Age: 87 Year
  Sex: Male

DRUGS (27)
  1. NUPLAZID [Suspect]
     Active Substance: PIMAVANSERIN TARTRATE
     Indication: Hallucination
     Dosage: 34 MILLIGRAM, QD
     Route: 048
     Dates: start: 20230223, end: 20250521
  2. ALLOPURINOL [Concomitant]
     Active Substance: ALLOPURINOL
  3. BIOTIN [Concomitant]
     Active Substance: BIOTIN
  4. CIMETIDINE [Concomitant]
     Active Substance: CIMETIDINE
  5. DONEPEZIL [Concomitant]
     Active Substance: DONEPEZIL
  6. FAMOTIDINE [Concomitant]
     Active Substance: FAMOTIDINE
  7. MOMETASONE FUROATE [Concomitant]
     Active Substance: MOMETASONE FUROATE
  8. FUROSEMIDE [Concomitant]
     Active Substance: FUROSEMIDE
  9. INCRUSE ELLIPTA [Concomitant]
     Active Substance: UMECLIDINIUM BROMIDE
  10. MAGNESIUM [Concomitant]
     Active Substance: MAGNESIUM
  11. MIRALAX [Concomitant]
     Active Substance: POLYETHYLENE GLYCOL 3350
  12. MIRABEGRON [Concomitant]
     Active Substance: MIRABEGRON
  13. OCUVITE [ASCORBIC ACID;RETINOL;TOCOPHEROL] [Concomitant]
  14. OMEPRAZOLE [Concomitant]
     Active Substance: OMEPRAZOLE
  15. OXYBUTYNIN [Concomitant]
     Active Substance: OXYBUTYNIN
  16. POTASSIUM CHLORIDE [Concomitant]
     Active Substance: POTASSIUM CHLORIDE
  17. PRAMIPEXOLE [Concomitant]
     Active Substance: PRAMIPEXOLE
  18. QUETIAPINE [Concomitant]
     Active Substance: QUETIAPINE
  19. QUINAPRIL [Concomitant]
     Active Substance: QUINAPRIL
  20. SERTRALINE [Concomitant]
     Active Substance: SERTRALINE HYDROCHLORIDE
  21. SPIRONOLACTONE [Concomitant]
     Active Substance: SPIRONOLACTONE
  22. TAMSULOSIN [Concomitant]
     Active Substance: TAMSULOSIN
  23. TRAMADOL [Concomitant]
     Active Substance: TRAMADOL
  24. TRAZODONE [Concomitant]
     Active Substance: TRAZODONE HYDROCHLORIDE
  25. TYLENOL [Concomitant]
     Active Substance: ACETAMINOPHEN
  26. VITAMIN C [Concomitant]
     Active Substance: ASCORBIC ACID
  27. CALCIUM + VITAMIN D3 [CALCIUM;COLECALCIFEROL] [Concomitant]

REACTIONS (1)
  - Death [Fatal]

NARRATIVE: CASE EVENT DATE: 20250521
